FAERS Safety Report 16189657 (Version 1)
Quarter: 2019Q2

REPORT INFORMATION
  Report Type: Spontaneous
  Country: US (occurrence: US)
  Receive Date: 20190411
  Receipt Date: 20190411
  Transmission Date: 20190711
  Serious: Yes (Other)
  Sender: FDA-Public Use
  Company Number: None

PATIENT
  Age: 65 Year
  Sex: Female
  Weight: 67.5 kg

DRUGS (1)
  1. ESOMEPRAZOLE MAGNESIUM 40MG DR CAPS [Suspect]
     Active Substance: ESOMEPRAZOLE MAGNESIUM
     Indication: GASTROOESOPHAGEAL REFLUX DISEASE
     Dosage: ?          QUANTITY:1 CAPSULE(S);?
     Route: 048
     Dates: start: 20190312, end: 20190322

REACTIONS (4)
  - Product substitution issue [None]
  - Rash [None]
  - Product physical issue [None]
  - Allergic reaction to excipient [None]

NARRATIVE: CASE EVENT DATE: 20190322
